FAERS Safety Report 9645165 (Version 1)
Quarter: 2013Q4

REPORT INFORMATION
  Report Type: Spontaneous
  Country: BR (occurrence: BR)
  Receive Date: 20131025
  Receipt Date: 20131025
  Transmission Date: 20140711
  Serious: Yes (Hospitalization)
  Sender: FDA-Public Use
  Company Number: BR-SA-2013SA105961

PATIENT
  Sex: Female
  Weight: 65 kg

DRUGS (12)
  1. LANTUS [Suspect]
     Indication: TYPE 2 DIABETES MELLITUS
     Route: 058
     Dates: start: 2008
  2. AUTOPEN 24 [Concomitant]
     Indication: DEVICE THERAPY
  3. VITAMINS [Concomitant]
     Indication: VITAMIN SUPPLEMENTATION
     Route: 048
     Dates: start: 2013
  4. BIPERIDEN HYDROCHLORIDE [Concomitant]
     Indication: CEREBROVASCULAR ACCIDENT
     Dosage: STRENGTH: 2 MG
     Route: 048
     Dates: start: 20110517
  5. ARADOIS [Concomitant]
     Indication: BLOOD PRESSURE
     Dosage: STRENGTH: 50 MG
     Route: 048
     Dates: start: 201308
  6. AMLODIPINE [Concomitant]
     Dosage: STRENGTH: 10 MG
     Route: 048
  7. LASIX [Concomitant]
     Dosage: STRENGTH: 40 MG
     Route: 048
     Dates: start: 2012
  8. HYDROCHLOROTHIAZIDE [Concomitant]
     Indication: ANTICOAGULANT THERAPY
     Dosage: STRENGTH: 25 MG
     Route: 048
  9. SOMALGIN CARDIO [Concomitant]
     Indication: CARDIAC DISORDER
     Dosage: STRENGTH: 100 MG
     Route: 048
     Dates: start: 2012
  10. ROSUVASTATIN [Concomitant]
     Indication: BLOOD CHOLESTEROL
     Dosage: STRENGTH: 20 MG
     Route: 048
     Dates: start: 201308
  11. PURAN T4 [Concomitant]
     Indication: THYROID DISORDER
     Dosage: STRENGTH: 88 MCG
     Route: 048
     Dates: start: 2005
  12. INSULIN [Concomitant]
     Indication: TYPE 2 DIABETES MELLITUS
     Route: 058
     Dates: start: 201308

REACTIONS (5)
  - Cerebrovascular accident [Recovered/Resolved]
  - Syncope [Recovered/Resolved]
  - Hypertension [Not Recovered/Not Resolved]
  - Local swelling [Recovering/Resolving]
  - Fatigue [Recovering/Resolving]
